FAERS Safety Report 7561915-9 (Version None)
Quarter: 2011Q2

REPORT INFORMATION
  Report Type: 
  Country: None (occurrence: None)
  Receive Date: 20110621
  Receipt Date: 20110607
  Transmission Date: 20111010
  Serious: Yes (Life-Threatening, Hospitalization)
  Sender: FDA-Public Use
  Company Number: US-ROCHE-783127

PATIENT
  Sex: Female

DRUGS (5)
  1. ASPIRIN [Suspect]
     Route: 065
  2. CARBOPLATIN [Suspect]
     Dosage: AUC 05 OVER 30 MIN ON DAY 01; CYCLE=21 DAYS
     Route: 042
     Dates: start: 20090406
  3. BEVACIZUMAB [Suspect]
     Dosage: CYCLE= 21 DAYS; OVER 30-90 MIN ON DAY 01
     Route: 042
     Dates: start: 20090406
  4. DOCETAXEL [Suspect]
     Dosage: OVER 01 HOUR ON DAY 01; CYCLE=21 DAYS
     Route: 042
     Dates: start: 20090406
  5. PACLITAXEL [Suspect]
     Dosage: OVER 03 HOURS ON DAY 01; CYCLE=21 DAYS
     Route: 042
     Dates: start: 20090406

REACTIONS (6)
  - VISION BLURRED [None]
  - SMALL INTESTINAL OBSTRUCTION [None]
  - DYSPNOEA [None]
  - ABDOMINAL PAIN [None]
  - CEREBRAL ISCHAEMIA [None]
  - GASTRIC HAEMORRHAGE [None]
